FAERS Safety Report 9690880 (Version 2)
Quarter: 2013Q4

REPORT INFORMATION
  Report Type: Spontaneous
  Country: JP (occurrence: JP)
  Receive Date: 20131115
  Receipt Date: 20131127
  Transmission Date: 20140711
  Serious: Yes (Hospitalization)
  Sender: FDA-Public Use
  Company Number: PHHY2013JP130658

PATIENT
  Age: 86 Year
  Sex: Female

DRUGS (2)
  1. RIVASTIGMIN [Suspect]
     Indication: DEMENTIA ALZHEIMER^S TYPE
     Dosage: UNK UKN, UNK
     Route: 062
     Dates: end: 201310
  2. MENESIT [Concomitant]
     Dosage: UNK UKN, UNK

REACTIONS (1)
  - Pneumonia aspiration [Unknown]
